FAERS Safety Report 19661935 (Version 1)
Quarter: 2021Q3

REPORT INFORMATION
  Report Type: Spontaneous
  Country: US (occurrence: US)
  Receive Date: 20210805
  Receipt Date: 20210805
  Transmission Date: 20211014
  Serious: Yes (Other)
  Sender: FDA-Public Use
  Company Number: US-ACCORD-191835

PATIENT
  Age: 58 Year
  Sex: Female
  Weight: 108.86 kg

DRUGS (19)
  1. ALBUTEROL. [Concomitant]
     Active Substance: ALBUTEROL
     Dates: start: 20060101
  2. DIAZEPAM. [Concomitant]
     Active Substance: DIAZEPAM
     Dates: start: 20060101
  3. LOPERAMIDE [Concomitant]
     Active Substance: LOPERAMIDE
     Dates: start: 20060101
  4. CARVEDILOL/CARVEDILOL HYDROCHLODRIDE [Concomitant]
     Active Substance: CARVEDILOL HYDROCHLORIDE
     Dates: start: 20060101
  5. AMLODIPINE [Concomitant]
     Active Substance: AMLODIPINE BESYLATE
     Dates: start: 2008
  6. SULFAMETHOXAZOLE/SULFAMETHOXAZOLE SODIUM [Concomitant]
     Active Substance: SULFAMETHOXAZOLE
     Dates: start: 20060101
  7. ROSUVASTATIN. [Concomitant]
     Active Substance: ROSUVASTATIN
     Dates: start: 20060101
  8. CETIRIZINE [Concomitant]
     Active Substance: CETIRIZINE HYDROCHLORIDE
     Dates: start: 20060101
  9. BUTALBITAL/CAFFEINE/PARACETAMOL [Concomitant]
     Active Substance: ACETAMINOPHEN\BUTALBITAL\CAFFEINE
     Dates: start: 20060101
  10. HYDROCHLOROTHIAZIDE\MOEXIPRIL HYDROCHLORIDE [Concomitant]
     Active Substance: HYDROCHLOROTHIAZIDE\MOEXIPRIL HYDROCHLORIDE
     Dates: start: 20060101
  11. SELENIUM [Concomitant]
     Active Substance: SELENIUM
     Dates: start: 20060101
  12. VALSARTAN. [Concomitant]
     Active Substance: VALSARTAN
     Dates: start: 20060101
  13. HYDROCODONE [Concomitant]
     Active Substance: HYDROCODONE
     Dates: start: 20060101
  14. DOCETAXEL ACCORD [Suspect]
     Active Substance: DOCETAXEL
     Indication: BREAST CANCER
     Dates: start: 20130620, end: 20130822
  15. CYTOXAN [Suspect]
     Active Substance: CYCLOPHOSPHAMIDE
     Indication: BREAST CANCER
     Dosage: AS SEQUENTIAL THERAPY TO DOCETAXEL
  16. EXEMESTANE. [Concomitant]
     Active Substance: EXEMESTANE
     Dates: start: 20060101
  17. GUAIFENESIN. [Concomitant]
     Active Substance: GUAIFENESIN
     Dates: start: 20060101
  18. LOXAPINE. [Concomitant]
     Active Substance: LOXAPINE
     Dates: start: 20060101
  19. PROMETHAZINE [Concomitant]
     Active Substance: PROMETHAZINE HYDROCHLORIDE
     Dates: start: 20060101

REACTIONS (1)
  - Alopecia [Not Recovered/Not Resolved]

NARRATIVE: CASE EVENT DATE: 20130701
